FAERS Safety Report 7645083-0 (Version None)
Quarter: 2011Q3

REPORT INFORMATION
  Report Type: 
  Country: None (occurrence: None)
  Receive Date: 20110729
  Receipt Date: 20110720
  Transmission Date: 20111222
  Serious: Yes (Other)
  Sender: FDA-Public Use
  Company Number: PHHY2011GB66012

PATIENT

DRUGS (3)
  1. METHOTREXATE [Concomitant]
     Dosage: UNK
  2. FUMADERM [Suspect]
     Indication: PSORIASIS
     Dosage: UNK
  3. CYCLOSPORINE [Suspect]
     Indication: PSORIASIS
     Dosage: UNK

REACTIONS (2)
  - PROTEINURIA [None]
  - GLOMERULAR FILTRATION RATE DECREASED [None]
